FAERS Safety Report 11607007 (Version 1)
Quarter: 2015Q4

REPORT INFORMATION
  Report Type: Spontaneous
  Country: US (occurrence: None)
  Receive Date: 20151007
  Receipt Date: 20151007
  Transmission Date: 20160304
  Serious: Yes (Other)
  Sender: FDA-Public Use
  Company Number: ADR-2015-01229

PATIENT
  Age: 72 Year
  Sex: Female

DRUGS (1)
  1. BACLOFEN INTRATHECAL 500 MG/ML [Suspect]
     Active Substance: BACLOFEN
     Indication: MUSCLE SPASTICITY
     Dosage: 50 MG/DAY

REACTIONS (2)
  - Unevaluable event [None]
  - Hypoaesthesia [None]
